FAERS Safety Report 14669728 (Version 1)
Quarter: 2018Q1

REPORT INFORMATION
  Report Type: Spontaneous
  Country: GB (occurrence: GB)
  Receive Date: 20180322
  Receipt Date: 20180322
  Transmission Date: 20180509
  Serious: Yes (Death)
  Sender: FDA-Public Use
  Company Number: GB-TERSERA THERAPEUTICS, LLC-2044323

PATIENT
  Age: 81 Year
  Sex: Male

DRUGS (1)
  1. ZOLADEX [Suspect]
     Active Substance: GOSERELIN ACETATE
     Indication: PRODUCT USED FOR UNKNOWN INDICATION
     Route: 058

REACTIONS (5)
  - Movement disorder [Unknown]
  - Head injury [Fatal]
  - Abdominal pain upper [Unknown]
  - Road traffic accident [Fatal]
  - Somnolence [Unknown]

NARRATIVE: CASE EVENT DATE: 201802
